FAERS Safety Report 13086147 (Version 1)
Quarter: 2017Q1

REPORT INFORMATION
  Report Type: Spontaneous
  Country: AU (occurrence: AU)
  Receive Date: 20170104
  Receipt Date: 20170104
  Transmission Date: 20170428
  Serious: Yes (Hospitalization, Other)
  Sender: FDA-Public Use
  Company Number: AU-MYLANLABS-2016M1058690

PATIENT

DRUGS (6)
  1. FELODIPINE. [Concomitant]
     Active Substance: FELODIPINE
     Indication: HYPERTENSION
     Dosage: 10 MG
     Route: 065
  2. ENALAPRIL [Concomitant]
     Active Substance: ENALAPRIL
     Indication: HYPERTENSION
     Dosage: 20 MG DAILY
     Route: 065
  3. CARBAMAZEPINE. [Suspect]
     Active Substance: CARBAMAZEPINE
     Indication: TRIGEMINAL NEURALGIA
     Dosage: UP TO 900 MG/DAY
     Route: 065
  4. ROSUVASTATIN. [Suspect]
     Active Substance: ROSUVASTATIN
     Indication: DYSLIPIDAEMIA
     Dosage: 10 MG DAILY
     Route: 065
  5. ALLOPURINOL. [Concomitant]
     Active Substance: ALLOPURINOL
     Indication: GOUT
     Dosage: 100 MG DAILY
     Route: 065
  6. OXYCODONE [Concomitant]
     Active Substance: OXYCODONE
     Indication: TRIGEMINAL NEURALGIA
     Route: 065

REACTIONS (4)
  - Neurotoxicity [Recovered/Resolved]
  - Pyrexia [Recovered/Resolved]
  - Coordination abnormal [Recovered/Resolved]
  - Nystagmus [Recovered/Resolved]
